FAERS Safety Report 6316727-0 (Version None)
Quarter: 2009Q3

REPORT INFORMATION
  Report Type: 
  Country: None (occurrence: None)
  Receive Date: 20090820
  Receipt Date: 20090811
  Transmission Date: 20100115
  Serious: Yes (Hospitalization, Other)
  Sender: FDA-Public Use
  Company Number: ES-ELI_LILLY_AND_COMPANY-ES200908002722

PATIENT
  Age: 52 Year
  Sex: Female

DRUGS (10)
  1. FORTEO [Suspect]
     Indication: OSTEOPOROSIS
     Dosage: 20 UG, UNK
     Route: 058
     Dates: start: 20070101
  2. SIMVASTATIN [Concomitant]
  3. CITALOPRAM HYDROBROMIDE [Concomitant]
  4. LORAZEPAM [Concomitant]
  5. EUTIROX [Concomitant]
  6. DACORTIN [Concomitant]
  7. OMEPRAZOLE [Concomitant]
  8. ENALAPRIL MALEATE [Concomitant]
  9. ZYPREXA [Concomitant]
  10. LEPONEX [Concomitant]

REACTIONS (6)
  - FALL [None]
  - MUSCLE ATROPHY [None]
  - NERVE COMPRESSION [None]
  - SPINAL COMPRESSION FRACTURE [None]
  - SPINAL FRACTURE [None]
  - WALKING DISABILITY [None]
